FAERS Safety Report 8798270 (Version 2)
Quarter: 2012Q4

REPORT INFORMATION
  Report Type: 
  Country: US (occurrence: None)
  Receive Date: 20120913
  Receipt Date: 20121011
  Transmission Date: 20130627
  Serious: Yes (Other)
  Sender: FDA-Public Use
  Company Number: JPI-P-021247

PATIENT
  Age: 44 Year
  Sex: Female
  Weight: 52.16 kg

DRUGS (7)
  1. XYREM (500 MILLIGRAM/MILLILITERS, SOLUTION) (SODIUM OXYBATE) [Suspect]
     Indication: EXCESSIVE DAYTIME SLEEPINESS
     Dosage: 6 gm (3 gm, 2 in 1 D), Oral
     Dates: start: 20050916
  2. XYREM (500 MILLIGRAM/MILLILITERS, SOLUTION) (SODIUM OXYBATE) [Suspect]
     Dosage: 6 gm (3 gm, 2 in 1 D), Oral
     Dates: start: 20050916
  3. XYREM (500 MILLIGRAM/MILLILITERS, SOLUTION) (SODIUM OXYBATE) [Suspect]
     Indication: EXCESSIVE DAYTIME SLEEPINESS
     Dosage: 10 gm (5 gm, 2 in 1 D), Oral
     Dates: start: 20060411
  4. XYREM (500 MILLIGRAM/MILLILITERS, SOLUTION) (SODIUM OXYBATE) [Suspect]
     Dosage: 10 gm (5 gm, 2 in 1 D), Oral
     Dates: start: 20060411
  5. XYREM (500 MILLIGRAM/MILLILITERS, SOLUTION) (SODIUM OXYBATE) [Suspect]
     Indication: EXCESSIVE DAYTIME SLEEPINESS
     Route: 048
  6. NASONEX NASAL SPRAY (MOMETASONE) [Concomitant]
  7. ZYRTEC (CETIRIZINE) [Concomitant]

REACTIONS (7)
  - Pain in extremity [None]
  - Poor quality sleep [None]
  - Arthropathy [None]
  - Drug ineffective [None]
  - Exostosis [None]
  - Rotator cuff syndrome [None]
  - Periarthritis [None]
